FAERS Safety Report 8180207-0 (Version None)
Quarter: 2012Q1

REPORT INFORMATION
  Report Type: 
  Country: None (occurrence: None)
  Receive Date: 20120229
  Receipt Date: 20120201
  Transmission Date: 20120608
  Serious: Yes (Hospitalization)
  Sender: FDA-Public Use
  Company Number: 2011PROUSA00863

PATIENT
  Age: 86 Year
  Sex: Male
  Weight: 79.8 kg

DRUGS (11)
  1. METOPROLOL TARTRATE [Concomitant]
  2. PROVENGE [Suspect]
     Indication: PROSTATE CANCER METASTATIC
     Dosage: 250 ML, SINGLE, INTRAVENOUS, 250 ML, SINGLE, INTRAVENOUS
     Route: 042
     Dates: start: 20111121, end: 20111121
  3. PROVENGE [Suspect]
     Indication: PROSTATE CANCER METASTATIC
     Dosage: 250 ML, SINGLE, INTRAVENOUS, 250 ML, SINGLE, INTRAVENOUS
     Route: 042
     Dates: start: 20111205, end: 20111205
  4. VYTORIN [Concomitant]
  5. ASPIRIN [Concomitant]
  6. PROVENGE [Suspect]
  7. NITROQUICK (GLYCERYL TRINITRATE) [Concomitant]
  8. DENOSUMAB (DENOSUMAB) [Concomitant]
  9. ALTACE [Concomitant]
  10. PLENDIL [Concomitant]
  11. METFORMIN HCL [Concomitant]

REACTIONS (5)
  - INFLUENZA LIKE ILLNESS [None]
  - MYOCARDIAL INFARCTION [None]
  - CHEST DISCOMFORT [None]
  - PULMONARY OEDEMA [None]
  - WHITE BLOOD CELL COUNT INCREASED [None]
